FAERS Safety Report 7270749-4 (Version None)
Quarter: 2011Q1

REPORT INFORMATION
  Report Type: 
  Country: None (occurrence: None)
  Receive Date: 20110202
  Receipt Date: 20110124
  Transmission Date: 20110831
  Serious: Yes (Hospitalization)
  Sender: FDA-Public Use
  Company Number: FR-ASTRAZENECA-2011SE04231

PATIENT
  Age: 85 Year
  Sex: Female

DRUGS (6)
  1. VITALOGINK [Suspect]
     Route: 048
     Dates: end: 20101115
  2. BIPERIDYS [Suspect]
     Route: 048
     Dates: end: 20101115
  3. NEXIUM [Suspect]
     Route: 048
     Dates: end: 20101115
  4. OLMETEC [Suspect]
     Route: 048
     Dates: end: 20101115
  5. LUDIOMIL [Suspect]
     Route: 048
     Dates: start: 20100801, end: 20101115
  6. TOPAAL [Suspect]
     Route: 048
     Dates: end: 20101115

REACTIONS (4)
  - FAECALOMA [None]
  - NAUSEA [None]
  - DEHYDRATION [None]
  - GASTROINTESTINAL DISORDER [None]
